FAERS Safety Report 4749853-8 (Version None)
Quarter: 2005Q3

REPORT INFORMATION
  Report Type: 
  Country: None (occurrence: None)
  Receive Date: 20050822
  Receipt Date: 20050804
  Transmission Date: 20060218
  Serious: Yes (Death)
  Sender: FDA-Public Use
  Company Number: 200512275JP

PATIENT
  Sex: Male

DRUGS (1)
  1. TAXOTERE [Suspect]
     Indication: OESOPHAGEAL CARCINOMA
     Route: 041
     Dates: start: 20050804, end: 20050804

REACTIONS (5)
  - ANAPHYLACTIC REACTION [None]
  - COUGH [None]
  - HYPERSENSITIVITY [None]
  - LYMPHANGIOSIS CARCINOMATOSA [None]
  - MALAISE [None]
